FAERS Safety Report 4263096-6 (Version None)
Quarter: 2004Q1

REPORT INFORMATION
  Report Type: 
  Country: None (occurrence: None)
  Receive Date: 20040105
  Receipt Date: 20031114
  Transmission Date: 20041129
  Serious: Yes (Hospitalization, Other)
  Sender: FDA-Public Use
  Company Number: PHBS2003JP12842

PATIENT
  Age: 73 Year
  Sex: Female
  Weight: 40 kg

DRUGS (5)
  1. LOCHOL [Suspect]
     Indication: HYPERCHOLESTEROLAEMIA
     Dosage: 20 MG/DAY
     Route: 048
     Dates: end: 20031104
  2. LANIRAPID [Concomitant]
     Indication: CARDIAC FAILURE CHRONIC
     Dosage: 0.1 MG
     Route: 048
     Dates: start: 20030311, end: 20031104
  3. DIAZEPAM [Suspect]
     Indication: MYALGIA
     Dosage: 4 MG/DAY
     Route: 048
     Dates: end: 20031104
  4. HI-Z [Concomitant]
     Indication: HYPERLIPIDAEMIA
     Dosage: 50 MG
     Route: 048
     Dates: start: 20030314, end: 20031104
  5. EXCELASE [Concomitant]
     Dosage: 2 DF
     Route: 048
     Dates: end: 20031104

REACTIONS (16)
  - ALANINE AMINOTRANSFERASE INCREASED [None]
  - ASPARTATE AMINOTRANSFERASE INCREASED [None]
  - BLOOD CREATINE PHOSPHOKINASE INCREASED [None]
  - BLOOD CREATININE INCREASED [None]
  - BLOOD LACTATE DEHYDROGENASE INCREASED [None]
  - BLOOD UREA INCREASED [None]
  - C-REACTIVE PROTEIN INCREASED [None]
  - CEREBRAL INFARCTION [None]
  - GAIT DISTURBANCE [None]
  - INSOMNIA [None]
  - MONOPLEGIA [None]
  - MYOGLOBIN BLOOD INCREASED [None]
  - POLYURIA [None]
  - PROTEIN URINE PRESENT [None]
  - RHABDOMYOLYSIS [None]
  - SENSATION OF HEAVINESS [None]
